FAERS Safety Report 4527630-0 (Version None)
Quarter: 2004Q4

REPORT INFORMATION
  Report Type: 
  Country: None (occurrence: None)
  Receive Date: 20041124
  Receipt Date: 20040621
  Transmission Date: 20050328
  Serious: Yes (Hospitalization, Other)
  Sender: FDA-Public Use
  Company Number: 2004029666

PATIENT
  Age: 78 Year
  Sex: Female

DRUGS (5)
  1. TIKOSYN [Suspect]
     Indication: ATRIAL FIBRILLATION
     Dosage: 100 MCG (500 MCG, 2 IN 1 D), ORAL
     Route: 048
     Dates: start: 20040303, end: 20040415
  2. ATENOLOL [Concomitant]
  3. HYDRALAZINE  HYDROCHLORIDE (HYDRALAZINE HYDROCHLORIDE) [Concomitant]
  4. POTASSIUM CHLORIDE [Concomitant]
  5. INSULIN [Concomitant]

REACTIONS (4)
  - ARRHYTHMIA [None]
  - IMPLANTABLE DEFIBRILLATOR INSERTION [None]
  - TACHYCARDIA [None]
  - VENTRICULAR TACHYCARDIA [None]
